FAERS Safety Report 14336959 (Version 2)
Quarter: 2018Q1

REPORT INFORMATION
  Report Type: Spontaneous
  Country: FR (occurrence: FR)
  Receive Date: 20171229
  Receipt Date: 20180110
  Transmission Date: 20180509
  Serious: Yes (Other)
  Sender: FDA-Public Use
  Company Number: FR-AUROBINDO-AUR-APL-2017-48064

PATIENT
  Age: 47 Year
  Sex: Female

DRUGS (3)
  1. CODEINE+PARACETAMOL [Suspect]
     Active Substance: ACETAMINOPHEN\CODEINE PHOSPHATE
     Indication: ROUTINE HEALTH MAINTENANCE
     Dosage: 3.36 G, UNK
     Route: 065
  2. NARATRIPTAN [Concomitant]
     Active Substance: NARATRIPTAN HYDROCHLORIDE
     Indication: PRODUCT USED FOR UNKNOWN INDICATION
     Route: 065
  3. CODEINE+PARACETAMOL [Suspect]
     Active Substance: ACETAMINOPHEN\CODEINE PHOSPHATE
     Indication: BACK PAIN
     Dosage: DOSE: GREATER THAN 3G TAKEN ON 2 DAYS OUT OF 7 DAYS
     Route: 065

REACTIONS (7)
  - Pain [Unknown]
  - Drug dependence [Unknown]
  - Vertigo [Unknown]
  - Nervousness [Unknown]
  - Rebound effect [Unknown]
  - Constipation [Unknown]
  - Drug withdrawal syndrome [Unknown]
